FAERS Safety Report 11841679 (Version 1)
Quarter: 2015Q4

REPORT INFORMATION
  Report Type: Spontaneous
  Country: US (occurrence: US)
  Receive Date: 20151216
  Receipt Date: 20151216
  Transmission Date: 20160305
  Serious: No
  Sender: FDA-Public Use
  Company Number: US-RB-070447-14

PATIENT
  Age: 2 Year
  Sex: Female

DRUGS (2)
  1. ZYRTEC [Concomitant]
     Active Substance: CETIRIZINE HYDROCHLORIDE
     Indication: PRODUCT USED FOR UNKNOWN INDICATION
     Dosage: DOSE UNK, UNITS UNK, FREQUENCY UNK
     Route: 065
  2. DELSYM [Suspect]
     Active Substance: DEXTROMETHORPHAN
     Indication: PRODUCT USED FOR UNKNOWN INDICATION
     Dosage: 4.9280ML. TOOK 1 TEASPOON OF THE PRODUCT ON 03-NOV-2014.,FREQUENCY UNK
     Route: 065
     Dates: start: 20141103

REACTIONS (3)
  - Drug administered to patient of inappropriate age [None]
  - Accidental exposure to product by child [Unknown]
  - No adverse event [Unknown]

NARRATIVE: CASE EVENT DATE: 20141103
